FAERS Safety Report 8452689 (Version 2)
Quarter: 2013Q2

REPORT INFORMATION
  Report Type: Spontaneous
  Country: US (occurrence: None)
  Receive Date: 20120130
  Receipt Date: 20120430
  Transmission Date: 20140414
  Serious: Yes (Hospitalization, Other)
  Sender: FDA-Public Use
  Company Number: 2011000216

PATIENT
  Age: 10 Year
  Sex: Male

DRUGS (2)
  1. KAPVAY [Suspect]
     Dates: start: 201109
  2. CLONIDINE TRANSDERMAL SYSTEM [Suspect]

REACTIONS (5)
  - OVERDOSE [None]
  - HYPOTENSION [None]
  - SOMNOLENCE [None]
  - MIOSIS [None]
  - SEDATION [None]
